FAERS Safety Report 18316669 (Version 1)
Quarter: 2020Q3

REPORT INFORMATION
  Report Type: Spontaneous
  Country: US (occurrence: US)
  Receive Date: 20200928
  Receipt Date: 20200928
  Transmission Date: 20201103
  Serious: No
  Sender: FDA-Public Use
  Company Number: US-LUPIN PHARMACEUTICALS INC.-2020-03985

PATIENT
  Age: 13 Day
  Sex: Female
  Weight: 1.05 kg

DRUGS (13)
  1. VANCOMYCIN [Concomitant]
     Active Substance: VANCOMYCIN
     Indication: ENDOCARDITIS STAPHYLOCOCCAL
  2. GENTAMICIN. [Concomitant]
     Active Substance: GENTAMICIN
     Indication: STAPHYLOCOCCAL INFECTION
     Dosage: 4 MILLIGRAM/KILOGRAM
     Route: 065
  3. GENTAMICIN. [Concomitant]
     Active Substance: GENTAMICIN
     Indication: ENDOCARDITIS STAPHYLOCOCCAL
  4. VANCOMYCIN [Concomitant]
     Active Substance: VANCOMYCIN
     Indication: EVIDENCE BASED TREATMENT
     Dosage: 15 MILLIGRAM/KILOGRAM
     Route: 042
  5. DAPTOMYCIN. [Concomitant]
     Active Substance: DAPTOMYCIN
     Indication: ENDOCARDITIS STAPHYLOCOCCAL
  6. ENOXAPARIN [Concomitant]
     Active Substance: ENOXAPARIN
     Indication: ENDOCARDITIS STAPHYLOCOCCAL
     Dosage: 2 MILLIGRAM/KILOGRAM EVERY 12 HOURS
     Route: 065
  7. ENOXAPARIN [Concomitant]
     Active Substance: ENOXAPARIN
     Dosage: 3.45 MILLIGRAM/KILOGRAM EVERY 12 HOURS
     Route: 065
  8. LINEZOLID. [Suspect]
     Active Substance: LINEZOLID
     Indication: STAPHYLOCOCCAL INFECTION
     Dosage: 10 MILLIGRAM/KILOGRAM EVERY 8 HOURS
     Route: 065
  9. VANCOMYCIN [Concomitant]
     Active Substance: VANCOMYCIN
     Indication: STAPHYLOCOCCAL INFECTION
  10. ENOXAPARIN [Concomitant]
     Active Substance: ENOXAPARIN
     Indication: STAPHYLOCOCCAL INFECTION
     Dosage: 1.5 MILLIGRAM/KILOGRAM EVERY 12 HOURS
     Route: 065
  11. ENOXAPARIN [Concomitant]
     Active Substance: ENOXAPARIN
     Dosage: 2.44 MILLIGRAM/KILOGRAM EVERY 12 HOURS
     Route: 065
  12. LINEZOLID. [Suspect]
     Active Substance: LINEZOLID
     Indication: ENDOCARDITIS STAPHYLOCOCCAL
  13. DAPTOMYCIN. [Concomitant]
     Active Substance: DAPTOMYCIN
     Indication: STAPHYLOCOCCAL INFECTION
     Dosage: 6 MILLIGRAM/KILOGRAM, EVERY 12 HOURS INFUSED OVER 60 MIN
     Route: 042

REACTIONS (1)
  - Off label use [Unknown]
